FAERS Safety Report 17651550 (Version 1)
Quarter: 2020Q2

REPORT INFORMATION
  Report Type: Report from Study
  Country: DE (occurrence: DE)
  Receive Date: 20200409
  Receipt Date: 20200409
  Transmission Date: 20200713
  Serious: Yes (Hospitalization)
  Sender: FDA-Public Use
  Company Number: DE-PFIZER INC-2020144684

PATIENT
  Age: 10 Year
  Sex: Male
  Weight: 35.5 kg

DRUGS (4)
  1. IBUPROFEN. [Suspect]
     Active Substance: IBUPROFEN
     Indication: JUVENILE IDIOPATHIC ARTHRITIS
     Dosage: 1 UNK, 1X/DAY
     Route: 048
     Dates: start: 20190601
  2. PREDNISON [Concomitant]
     Active Substance: PREDNISONE
     Indication: JUVENILE IDIOPATHIC ARTHRITIS
     Dosage: 1 UNK, 1X/DAY
     Route: 048
     Dates: start: 20190523
  3. METHOTREXATE SODIUM. [Suspect]
     Active Substance: METHOTREXATE SODIUM
     Indication: JUVENILE IDIOPATHIC ARTHRITIS
     Dosage: 1 UNK, WEEKLY
     Route: 058
     Dates: start: 20190523
  4. HUMIRA [Suspect]
     Active Substance: ADALIMUMAB
     Indication: JUVENILE IDIOPATHIC ARTHRITIS
     Dosage: 40 MG, UNK (2X/WEEK)
     Route: 058
     Dates: start: 20190523, end: 20191030

REACTIONS (2)
  - Optic neuritis [Recovering/Resolving]
  - Transaminases increased [Not Recovered/Not Resolved]

NARRATIVE: CASE EVENT DATE: 20191107
